FAERS Safety Report 6649098-0 (Version None)
Quarter: 2010Q1

REPORT INFORMATION
  Report Type: 
  Country: None (occurrence: None)
  Receive Date: 20100324
  Receipt Date: 20100308
  Transmission Date: 20100710
  Serious: No
  Sender: FDA-Public Use
  Company Number: US-JNJFOC-20100302572

PATIENT
  Sex: Female
  Weight: 77.11 kg

DRUGS (8)
  1. FENTANYL-100 [Suspect]
     Indication: PELVIC FRACTURE
     Route: 062
  2. FENTANYL-100 [Suspect]
     Indication: PAIN
     Route: 062
  3. FENTANYL CITRATE [Suspect]
     Indication: PELVIC FRACTURE
     Route: 062
     Dates: start: 20100101
  4. FENTANYL CITRATE [Suspect]
     Indication: PAIN
     Route: 062
     Dates: start: 20100101
  5. DURAGESIC-100 [Suspect]
     Indication: PAIN
     Route: 062
  6. NUVIGIL [Concomitant]
     Indication: ASTHENIA
     Route: 048
  7. NORCO [Concomitant]
     Indication: PAIN
     Route: 048
  8. ALBUTEROL [Concomitant]
     Route: 048

REACTIONS (4)
  - DRUG ADMINISTERED AT INAPPROPRIATE SITE [None]
  - DRUG EFFECT DECREASED [None]
  - FATIGUE [None]
  - WRONG TECHNIQUE IN DRUG USAGE PROCESS [None]
